FAERS Safety Report 18170325 (Version 1)
Quarter: 2020Q3

REPORT INFORMATION
  Report Type: Spontaneous
  Country: DE (occurrence: DE)
  Receive Date: 20200819
  Receipt Date: 20200819
  Transmission Date: 20201103
  Serious: Yes (Hospitalization, Other)
  Sender: FDA-Public Use
  Company Number: DE-TEVA-2020-DE-1815638

PATIENT
  Age: 73 Year
  Sex: Female

DRUGS (9)
  1. ONDANSETRON [Concomitant]
     Active Substance: ONDANSETRON
     Dosage: 8 MG, AS NEEDED
  2. OXALIPLATIN. [Suspect]
     Active Substance: OXALIPLATIN
     Dosage: 150 MG, MOST RECENTLY ON 23?JUN?2020
     Route: 065
  3. PANTOPRAZOL [Concomitant]
     Active Substance: PANTOPRAZOLE SODIUM
     Dosage: 40 MILLIGRAM DAILY; 0?0?1?0
  4. METAMIZOL [Suspect]
     Active Substance: METAMIZOLE SODIUM
     Dosage: 120 GTT DAILY; 30?30?30?30, DROPS
  5. FLUOROURACIL. [Suspect]
     Active Substance: FLUOROURACIL
     Dosage: 5200 G, LAST ON 23?JUN?2020
     Route: 065
  6. MCP [Concomitant]
     Active Substance: METOCLOPRAMIDE HYDROCHLORIDE
     Dosage: 10 MG, AS NEEDED
  7. LEVOTHYROXIN?NATRIUM [Concomitant]
     Active Substance: LEVOTHYROXINE SODIUM
     Dosage: 100 MICROGRAM DAILY; 1?0?0?0
  8. FOLINSAURE [Concomitant]
     Active Substance: LEUCOVORIN
     Dosage: 370 MG, MOST RECENTLY ON 23?JUN?2020
  9. METOPROLOL. [Concomitant]
     Active Substance: METOPROLOL
     Dosage: 95 MILLIGRAM DAILY; 1?0?1?0

REACTIONS (8)
  - Blood creatinine increased [Unknown]
  - Pancreatitis [Unknown]
  - Acute kidney injury [Unknown]
  - Malaise [Unknown]
  - Decreased appetite [Unknown]
  - Vomiting [Unknown]
  - General physical health deterioration [Unknown]
  - Dysphagia [Unknown]
